FAERS Safety Report 8317567-3 (Version None)
Quarter: 2012Q2

REPORT INFORMATION
  Report Type: 
  Country: None (occurrence: None)
  Receive Date: 20120427
  Receipt Date: 20110307
  Transmission Date: 20120825
  Serious: No
  Sender: FDA-Public Use
  Company Number: US-GLAXOSMITHKLINE-A0918057A

PATIENT
  Age: 43 Year
  Sex: Female

DRUGS (5)
  1. BLOOD PRESSURE MEDICATION [Concomitant]
  2. PROZAC [Concomitant]
  3. ZOFRAN [Suspect]
     Indication: PRODUCT USED FOR UNKNOWN INDICATION
     Route: 065
  4. ATIVAN [Concomitant]
  5. TEMODAR [Suspect]
     Indication: MALIGNANT MELANOMA
     Dosage: 800MG THREE TIMES PER DAY
     Route: 048
     Dates: start: 20101001, end: 20101201

REACTIONS (9)
  - CONSTIPATION [None]
  - IRON DEFICIENCY [None]
  - WEIGHT DECREASED [None]
  - ABDOMINAL DISCOMFORT [None]
  - RESTLESS LEGS SYNDROME [None]
  - MALAISE [None]
  - VOMITING [None]
  - MIGRAINE [None]
  - DEHYDRATION [None]
